FAERS Safety Report 11324688 (Version 2)
Quarter: 2015Q3

REPORT INFORMATION
  Report Type: Spontaneous
  Country: US (occurrence: US)
  Receive Date: 20150730
  Receipt Date: 20150914
  Transmission Date: 20151125
  Serious: No
  Sender: FDA-Public Use
  Company Number: US-PFIZER INC-2015253356

PATIENT
  Age: 43 Year
  Sex: Male
  Weight: 96 kg

DRUGS (3)
  1. PROAIR ALBUTEROL [Concomitant]
     Indication: ASTHMA PROPHYLAXIS
     Dosage: UNK, AS NEEDED
  2. VIAGRA [Suspect]
     Active Substance: SILDENAFIL CITRATE
     Indication: ERECTILE DYSFUNCTION
     Dosage: 100MG TABLETS, TAKE ONE TABLET BY MOUTH AS DIRECTED, 30-60 MINUTES BEFORE SEXUAL ENCOUNTER
     Route: 048
     Dates: start: 20150627
  3. SYMBICORT [Concomitant]
     Active Substance: BUDESONIDE\FORMOTEROL FUMARATE DIHYDRATE
     Indication: ASTHMA PROPHYLAXIS
     Dosage: UNK, AS NEEDED

REACTIONS (5)
  - Headache [Recovered/Resolved]
  - Orgasm abnormal [Unknown]
  - Vision blurred [Recovered/Resolved]
  - Agitation [Recovered/Resolved]
  - Erythema [Recovered/Resolved]

NARRATIVE: CASE EVENT DATE: 20150628
